FAERS Safety Report 8466175-2 (Version None)
Quarter: 2012Q2

REPORT INFORMATION
  Report Type: 
  Country: None (occurrence: None)
  Receive Date: 20120620
  Receipt Date: 20120620
  Transmission Date: 20120825
  Serious: Yes (Other)
  Sender: FDA-Public Use
  Company Number: None

PATIENT
  Age: 40 Year
  Sex: Female
  Weight: 145.151 kg

DRUGS (1)
  1. BYETTA [Suspect]
     Indication: DIABETES MELLITUS
     Dosage: 5MCG-10MCG BID SQ
     Route: 058
     Dates: start: 20120214, end: 20120219

REACTIONS (4)
  - ERUCTATION [None]
  - NAUSEA [None]
  - DIARRHOEA [None]
  - VOMITING [None]
